FAERS Safety Report 6228982-6 (Version None)
Quarter: 2009Q2

REPORT INFORMATION
  Report Type: 
  Country: None (occurrence: None)
  Receive Date: 20090615
  Receipt Date: 20090605
  Transmission Date: 20091009
  Serious: Yes (Hospitalization)
  Sender: FDA-Public Use
  Company Number: JP-ASTRAZENECA-2009SE02428

PATIENT
  Age: 61 Year
  Sex: Male

DRUGS (10)
  1. COKENZEN [Suspect]
     Indication: HYPERTENSION
     Dosage: 16/12.5
     Route: 048
  2. LONOTEN [Interacting]
     Indication: HYPERTENSION
     Route: 048
     Dates: end: 20090101
  3. PRAZOSIN HCL [Interacting]
     Indication: HYPERTENSION
     Route: 048
  4. ISOPTIN [Interacting]
     Indication: HYPERTENSION
     Route: 048
  5. SYMBICORT [Concomitant]
     Indication: CHRONIC OBSTRUCTIVE PULMONARY DISEASE
     Route: 055
  6. MOPRAL [Concomitant]
     Indication: DRUG USE FOR UNKNOWN INDICATION
     Route: 048
  7. TAHOR [Concomitant]
     Indication: DYSLIPIDAEMIA
     Route: 048
  8. VENTOLIN [Concomitant]
     Indication: CHRONIC OBSTRUCTIVE PULMONARY DISEASE
     Route: 055
  9. TEMESTA [Concomitant]
     Indication: DRUG USE FOR UNKNOWN INDICATION
     Route: 048
  10. IPRATROPIUM BROMIDE [Concomitant]
     Indication: CHRONIC OBSTRUCTIVE PULMONARY DISEASE
     Route: 048

REACTIONS (3)
  - DIZZINESS [None]
  - DRUG INTERACTION [None]
  - ORTHOSTATIC HYPOTENSION [None]
